FAERS Safety Report 8058361-0 (Version None)
Quarter: 2012Q1

REPORT INFORMATION
  Report Type: 
  Country: None (occurrence: None)
  Receive Date: 20120120
  Receipt Date: 20120116
  Transmission Date: 20120608
  Serious: Yes (Life-Threatening, Other)
  Sender: FDA-Public Use
  Company Number: IE-ELI_LILLY_AND_COMPANY-IE201201005078

PATIENT
  Sex: Male

DRUGS (3)
  1. LEXAPRO [Concomitant]
  2. ZYPREXA [Suspect]
     Route: 048
  3. LITHIUM CARBONATE [Concomitant]

REACTIONS (4)
  - INTENTIONAL DRUG MISUSE [None]
  - HYPERSENSITIVITY [None]
  - NEUROLEPTIC MALIGNANT SYNDROME [None]
  - WEIGHT INCREASED [None]
